FAERS Safety Report 7437860-6 (Version None)
Quarter: 2011Q2

REPORT INFORMATION
  Report Type: 
  Country: None (occurrence: None)
  Receive Date: 20110426
  Receipt Date: 20110419
  Transmission Date: 20111010
  Serious: Yes (Hospitalization)
  Sender: FDA-Public Use
  Company Number: A0923589A

PATIENT
  Age: 70 Year
  Sex: Female

DRUGS (8)
  1. ACTONEL [Concomitant]
  2. NEXIUM [Concomitant]
  3. MIRALAX [Concomitant]
  4. METOPROLOL TARTRATE [Concomitant]
  5. PROPAFENONE HYDROCHLORIDE [Suspect]
     Indication: ATRIAL FIBRILLATION
     Dosage: 225MG PER DAY
     Route: 048
     Dates: start: 20081008, end: 20090101
  6. MAXZIDE [Concomitant]
  7. WARFARIN [Concomitant]
  8. SIMVASTATIN [Concomitant]

REACTIONS (4)
  - ATRIAL FIBRILLATION [None]
  - DIZZINESS [None]
  - DRUG INEFFECTIVE [None]
  - BLOOD PRESSURE INCREASED [None]
